FAERS Safety Report 18017819 (Version 7)
Quarter: 2020Q4

REPORT INFORMATION
  Report Type: Spontaneous
  Country: US (occurrence: US)
  Receive Date: 20200713
  Receipt Date: 20201020
  Transmission Date: 20210113
  Serious: Yes (Hospitalization, Other)
  Sender: FDA-Public Use
  Company Number: US-LEXICON PHARMACEUTICALS, INC-20-1606-00543

PATIENT
  Age: 64 Year
  Sex: Female

DRUGS (4)
  1. XERMELO [Suspect]
     Active Substance: TELOTRISTAT ETHYL
  2. MORPHINE SULFATE. [Concomitant]
     Active Substance: MORPHINE SULFATE
  3. XERMELO [Suspect]
     Active Substance: TELOTRISTAT ETHYL
     Indication: CARCINOID SYNDROME
     Dates: start: 20200521
  4. XERMELO [Suspect]
     Active Substance: TELOTRISTAT ETHYL

REACTIONS (5)
  - Hospice care [Unknown]
  - Abdominal discomfort [Recovered/Resolved]
  - Herpes zoster [Unknown]
  - Colitis [Unknown]
  - Constipation [Unknown]

NARRATIVE: CASE EVENT DATE: 2020
